FAERS Safety Report 21307361 (Version 1)
Quarter: 2022Q3

REPORT INFORMATION
  Report Type: Spontaneous
  Country: US (occurrence: None)
  Receive Date: 20220907
  Receipt Date: 20220907
  Transmission Date: 20221027
  Serious: Yes (Other)
  Sender: FDA-Public Use
  Company Number: None

PATIENT
  Age: 51 Year
  Sex: Male
  Weight: 110.25 kg

DRUGS (1)
  1. ATORVASTATIN [Suspect]
     Active Substance: ATORVASTATIN
     Indication: Low density lipoprotein increased
     Dosage: FREQUENCY : AT BEDTIME;?
     Route: 048
     Dates: start: 20220820, end: 20220901

REACTIONS (5)
  - Lethargy [None]
  - Depression [None]
  - Anger [None]
  - Suicidal ideation [None]
  - Feeling of despair [None]

NARRATIVE: CASE EVENT DATE: 20220825
